FAERS Safety Report 8005305-3 (Version None)
Quarter: 2011Q4

REPORT INFORMATION
  Report Type: 
  Country: None (occurrence: None)
  Receive Date: 20111223
  Receipt Date: 20111214
  Transmission Date: 20120403
  Serious: Yes (Other)
  Sender: FDA-Public Use
  Company Number: US-PURDUE-USA-2011-0079851

PATIENT
  Sex: Male

DRUGS (2)
  1. HEROIN [Suspect]
     Indication: FOETAL EXPOSURE DURING PREGNANCY
  2. OXYCONTIN [Suspect]
     Indication: FOETAL EXPOSURE DURING PREGNANCY

REACTIONS (2)
  - DRUG DEPENDENCE [None]
  - FOETAL EXPOSURE DURING PREGNANCY [None]
